FAERS Safety Report 9051308 (Version 1)
Quarter: 2013Q1

REPORT INFORMATION
  Report Type: Spontaneous
  Country: AE (occurrence: AE)
  Receive Date: 20130206
  Receipt Date: 20130206
  Transmission Date: 20140127
  Serious: Yes (Life-Threatening, Hospitalization, Other)
  Sender: FDA-Public Use
  Company Number: PHHY2013AE009752

PATIENT
  Age: 51 None
  Sex: Male
  Weight: 91 kg

DRUGS (1)
  1. GLIVEC [Suspect]
     Indication: CHRONIC MYELOID LEUKAEMIA
     Dosage: 400 MG, UNK
     Route: 048
     Dates: start: 20130103, end: 20130115

REACTIONS (3)
  - Subdural haematoma [Recovered/Resolved]
  - Headache [Unknown]
  - Platelet count decreased [Recovered/Resolved]
